FAERS Safety Report 8975674 (Version 1)
Quarter: 2012Q4

REPORT INFORMATION
  Report Type: 
  Country: DK (occurrence: DK)
  Receive Date: 20121219
  Receipt Date: 20121219
  Transmission Date: 20130627
  Serious: Yes (Hospitalization)
  Sender: FDA-Public Use
  Company Number: DK-WATSON-2012-22015

PATIENT
  Age: 20 Year
  Sex: Male

DRUGS (3)
  1. METHYLPHENIDATE HYDROCHLORIDE [Suspect]
     Indication: ATTENTION DEFICIT/HYPERACTIVITY DISORDER
     Dosage: 600 mg, unknown
     Route: 065
  2. METHYLPHENIDATE HYDROCHLORIDE [Suspect]
     Dosage: 10 mg, daily
     Route: 065
  3. CHLORPROTHIXENE [Suspect]
     Indication: PRODUCT USED FOR UNKNOWN INDICATION
     Dosage: UNK, unknown
     Route: 065

REACTIONS (5)
  - Acute myocardial infarction [Unknown]
  - Pulmonary embolism [Unknown]
  - Chronic obstructive pulmonary disease [Unknown]
  - Intentional drug misuse [Unknown]
  - Overdose [Unknown]
